FAERS Safety Report 9581485 (Version 2)
Quarter: 2013Q4

REPORT INFORMATION
  Report Type: Spontaneous
  Country: FR (occurrence: FR)
  Receive Date: 20131002
  Receipt Date: 20131002
  Transmission Date: 20140711
  Serious: Yes (Other)
  Sender: FDA-Public Use
  Company Number: PHHY2013FR072460

PATIENT
  Sex: Female

DRUGS (5)
  1. GILENYA [Suspect]
     Indication: MULTIPLE SCLEROSIS
     Dosage: 1 DF, DAILY
     Route: 048
     Dates: start: 201202, end: 20130705
  2. SEROPLEX [Concomitant]
     Indication: DEPRESSION
     Dosage: 5 MG, QD
     Route: 048
     Dates: start: 20130429
  3. MODIODAL [Concomitant]
     Indication: FATIGUE
     Dosage: 1 DF, BID
     Route: 048
     Dates: start: 20010901
  4. BROMAZEPAM [Concomitant]
     Indication: ANXIETY
     Dosage: 1 DF, DAILY
     Route: 048
     Dates: start: 19950621
  5. ZOLPIDEM [Concomitant]
     Indication: INSOMNIA
     Dosage: 1 DF, DAILY
     Route: 048
     Dates: start: 20020311

REACTIONS (5)
  - Hepatocellular injury [Recovering/Resolving]
  - Hepatic enzyme increased [Unknown]
  - Alanine aminotransferase increased [Unknown]
  - Aspartate aminotransferase increased [Unknown]
  - Gamma-glutamyltransferase increased [Unknown]
